FAERS Safety Report 17688109 (Version 1)
Quarter: 2020Q2

REPORT INFORMATION
  Report Type: Report from Study
  Country: CA (occurrence: CA)
  Receive Date: 20200421
  Receipt Date: 20200421
  Transmission Date: 20200714
  Serious: Yes (Hospitalization, Other)
  Sender: FDA-Public Use
  Company Number: CA-TAKEDA-2020TUS012531

PATIENT
  Age: 44 Year
  Sex: Female

DRUGS (6)
  1. VEDOLIZUMAB [Suspect]
     Active Substance: VEDOLIZUMAB
     Indication: COLITIS ULCERATIVE
     Dosage: 300 MILLIGRAM
     Route: 042
     Dates: start: 20150611
  2. EFFEXOR [Concomitant]
     Active Substance: VENLAFAXINE HYDROCHLORIDE
     Dosage: UNK
  3. ENTOCORT [Concomitant]
     Active Substance: BUDESONIDE
     Dosage: UNK
     Dates: start: 201503
  4. ENTOCORT [Concomitant]
     Active Substance: BUDESONIDE
     Dosage: UNK
     Route: 048
  5. VITAMIN D NOS [Concomitant]
     Active Substance: VITAMIN D NOS
     Dosage: 2000 MILLIGRAM
  6. MEZAVANT [Concomitant]
     Active Substance: MESALAMINE
     Dosage: UNK, BID
     Dates: start: 201412

REACTIONS (1)
  - Metabolic surgery [Unknown]

NARRATIVE: CASE EVENT DATE: 20200123
